FAERS Safety Report 13410597 (Version 2)
Quarter: 2017Q4

REPORT INFORMATION
  Report Type: Spontaneous
  Country: US (occurrence: US)
  Receive Date: 20170406
  Receipt Date: 20171123
  Transmission Date: 20180320
  Serious: No
  Sender: FDA-Public Use
  Company Number: US-JNJFOC-20170300180

PATIENT
  Sex: Male

DRUGS (3)
  1. RISPERIDONE. [Suspect]
     Active Substance: RISPERIDONE
     Indication: HALLUCINATION
     Dosage: VARYING DOSES OF 0.5 MG, 1MG, 1.5 MG AND 2 MG
     Route: 048
     Dates: start: 19971014, end: 19980415
  2. RISPERDAL [Suspect]
     Active Substance: RISPERIDONE
     Indication: HALLUCINATION
     Dosage: VARYING DOSES OF 0.25 MG, 0.5 MG, 1 MG, 1.5 MG AND 2 MG
     Route: 048
     Dates: start: 19980501, end: 20000725
  3. RISPERDAL [Suspect]
     Active Substance: RISPERIDONE
     Indication: HALLUCINATION
     Route: 048
     Dates: start: 19971014, end: 20000815

REACTIONS (2)
  - Gynaecomastia [Unknown]
  - Emotional disorder [Unknown]
